FAERS Safety Report 18936339 (Version 12)
Quarter: 2021Q3

REPORT INFORMATION
  Report Type: Spontaneous
  Country: US (occurrence: US)
  Receive Date: 20210224
  Receipt Date: 20210806
  Transmission Date: 20211014
  Serious: Yes (Life-Threatening, Other)
  Sender: FDA-Public Use
  Company Number: US-PFIZER INC-2021166809

PATIENT
  Age: 62 Year

DRUGS (1)
  1. CALAN SR [Suspect]
     Active Substance: VERAPAMIL HYDROCHLORIDE
     Dosage: 240 MG

REACTIONS (16)
  - Coma [Unknown]
  - Fall [Unknown]
  - Amyotrophic lateral sclerosis [Unknown]
  - Bladder sphincter atony [Unknown]
  - Product prescribing error [Unknown]
  - Visual impairment [Not Recovered/Not Resolved]
  - Autoimmune disorder [Not Recovered/Not Resolved]
  - Malaise [Unknown]
  - Raynaud^s phenomenon [Unknown]
  - Blood glucose decreased [Unknown]
  - Blood pressure fluctuation [Unknown]
  - Type 1 diabetes mellitus [Not Recovered/Not Resolved]
  - Loss of consciousness [Unknown]
  - Speech disorder [Unknown]
  - Eye infection [Unknown]
  - Memory impairment [Unknown]

NARRATIVE: CASE EVENT DATE: 2020
